FAERS Safety Report 23621661 (Version 1)
Quarter: 2024Q1

REPORT INFORMATION
  Report Type: Spontaneous
  Country: US (occurrence: US)
  Receive Date: 20240312
  Receipt Date: 20240312
  Transmission Date: 20240410
  Serious: No
  Sender: FDA-Public Use
  Company Number: US-BRISTOL-MYERS SQUIBB COMPANY-2024-038193

PATIENT
  Age: 70 Year
  Sex: Female
  Weight: 67.8 kg

DRUGS (3)
  1. ELIQUIS [Suspect]
     Active Substance: APIXABAN
     Indication: Mesenteric vein thrombosis
     Dates: start: 202402
  2. BRAFTOVI [Suspect]
     Active Substance: ENCORAFENIB
     Indication: Hepatobiliary cancer
     Route: 048
     Dates: start: 202402, end: 202402
  3. BRAFTOVI [Suspect]
     Active Substance: ENCORAFENIB
     Indication: Colon cancer

REACTIONS (3)
  - Flushing [Recovered/Resolved]
  - Epistaxis [Recovered/Resolved]
  - Off label use [Unknown]

NARRATIVE: CASE EVENT DATE: 20240201
